FAERS Safety Report 5302854-3 (Version None)
Quarter: 2007Q2

REPORT INFORMATION
  Report Type: 
  Country: None (occurrence: None)
  Receive Date: 20070418
  Receipt Date: 20070418
  Transmission Date: 20071010
  Serious: Yes (Death)
  Sender: FDA-Public Use
  Company Number: None

PATIENT
  Age: 18 Year
  Sex: Male
  Weight: 56.6996 kg

DRUGS (2)
  1. DARVOCET [Suspect]
     Indication: PAIN IN EXTREMITY
     Dosage: 1 AT BEDTIME PO
     Route: 048
     Dates: start: 20060804, end: 20060812
  2. DAYPRO 650MG [Suspect]
     Indication: PAIN IN EXTREMITY
     Dosage: 2 ONCE A DAY PO
     Route: 048
     Dates: start: 20060804, end: 20060812

REACTIONS (1)
  - DRUG ADMINISTRATION ERROR [None]
